FAERS Safety Report 23734731 (Version 2)
Quarter: 2024Q2

REPORT INFORMATION
  Report Type: Spontaneous
  Country: US (occurrence: US)
  Receive Date: 20240412
  Receipt Date: 20240529
  Transmission Date: 20240715
  Serious: Yes (Hospitalization, Other)
  Sender: FDA-Public Use
  Company Number: US-Blueprint Medicines Corporation-3094

PATIENT
  Sex: Female

DRUGS (1)
  1. AYVAKIT [Suspect]
     Active Substance: AVAPRITINIB
     Indication: Systemic mastocytosis
     Route: 065
     Dates: start: 20240209

REACTIONS (5)
  - Cardiac failure [Unknown]
  - Stent placement [Unknown]
  - Pain in extremity [Unknown]
  - Feeling abnormal [Unknown]
  - Product dose omission issue [Unknown]
